FAERS Safety Report 11443593 (Version 1)
Quarter: 2015Q3

REPORT INFORMATION
  Report Type: Spontaneous
  Country: CN (occurrence: CN)
  Receive Date: 20150901
  Receipt Date: 20150901
  Transmission Date: 20151125
  Serious: Yes (Death)
  Sender: FDA-Public Use
  Company Number: CN-BAUSCH-SYM-2013-06933

PATIENT
  Age: 44 Year
  Sex: Male

DRUGS (10)
  1. 5 FU [Suspect]
     Active Substance: FLUOROURACIL
     Indication: COLORECTAL CANCER METASTATIC
     Route: 040
     Dates: start: 20130606, end: 20130606
  2. IRINOTECAN [Suspect]
     Active Substance: IRINOTECAN
     Route: 042
     Dates: start: 20130704, end: 20130704
  3. AFLIBERCEPT [Suspect]
     Active Substance: AFLIBERCEPT
     Indication: COLORECTAL CANCER METASTATIC
     Route: 042
     Dates: start: 20130606, end: 20130606
  4. IRINOTECAN [Suspect]
     Active Substance: IRINOTECAN
     Indication: COLORECTAL CANCER METASTATIC
     Route: 042
     Dates: start: 20130606, end: 20130606
  5. LEUCOVORIN. [Suspect]
     Active Substance: LEUCOVORIN
     Route: 042
     Dates: start: 20130704, end: 20130704
  6. LEUCOVORIN. [Suspect]
     Active Substance: LEUCOVORIN
     Indication: COLORECTAL CANCER METASTATIC
     Route: 042
     Dates: start: 20130606, end: 20130606
  7. AFLIBERCEPT [Suspect]
     Active Substance: AFLIBERCEPT
     Route: 042
     Dates: start: 20130704, end: 20130704
  8. 5 FU [Suspect]
     Active Substance: FLUOROURACIL
     Route: 042
     Dates: start: 20130704, end: 20130705
  9. 5 FU [Suspect]
     Active Substance: FLUOROURACIL
     Route: 042
     Dates: start: 20130606
  10. 5 FU [Suspect]
     Active Substance: FLUOROURACIL
     Route: 040
     Dates: start: 20130704, end: 20130704

REACTIONS (1)
  - Gastrointestinal haemorrhage [Fatal]

NARRATIVE: CASE EVENT DATE: 20130712
